FAERS Safety Report 9843226 (Version 3)
Quarter: 2014Q1

REPORT INFORMATION
  Report Type: Report from Study
  Country: US (occurrence: US)
  Receive Date: 20140124
  Receipt Date: 20140320
  Transmission Date: 20141002
  Serious: Yes (Hospitalization, Other)
  Sender: FDA-Public Use
  Company Number: US-ABBVIE-14P-163-1191462-00

PATIENT
  Age: 79 Year
  Sex: Female
  Weight: 82.63 kg

DRUGS (9)
  1. HUMIRA [Suspect]
     Indication: RHEUMATOID ARTHRITIS
     Dates: start: 2001
  2. HUMIRA [Suspect]
     Indication: RHEUMATOID ARTHRITIS
  3. PLAVIX [Concomitant]
     Indication: PRODUCT USED FOR UNKNOWN INDICATION
  4. ATENOLOL [Concomitant]
     Indication: PRODUCT USED FOR UNKNOWN INDICATION
  5. CELEBREX [Concomitant]
     Indication: PRODUCT USED FOR UNKNOWN INDICATION
  6. NEXIUM [Concomitant]
     Indication: PRODUCT USED FOR UNKNOWN INDICATION
  7. FOLIC ACID [Concomitant]
     Indication: PRODUCT USED FOR UNKNOWN INDICATION
  8. NITROSTAT [Concomitant]
     Indication: PRODUCT USED FOR UNKNOWN INDICATION
     Dosage: UNKNOWN
  9. CELEBREX [Concomitant]
     Indication: PRODUCT USED FOR UNKNOWN INDICATION

REACTIONS (7)
  - Coronary artery occlusion [Recovering/Resolving]
  - Injection site pain [Recovered/Resolved]
  - Injection site haemorrhage [Recovered/Resolved]
  - Dyspepsia [Recovered/Resolved]
  - Bronchitis [Recovered/Resolved]
  - Device issue [Unknown]
  - Incorrect dose administered [Unknown]
